FAERS Safety Report 5405611-2 (Version None)
Quarter: 2007Q3

REPORT INFORMATION
  Report Type: 
  Country: None (occurrence: None)
  Receive Date: 20070806
  Receipt Date: 20070727
  Transmission Date: 20080115
  Serious: Yes (Other)
  Sender: FDA-Public Use
  Company Number: PHEH2007US08502

PATIENT
  Age: 39 Year
  Sex: Female
  Weight: 87.528 kg

DRUGS (4)
  1. LOTREL [Suspect]
     Dosage: UNK, QD
     Route: 048
  2. LOPRESSOR [Concomitant]
  3. CATAFLAM [Concomitant]
  4. BACTRIM [Concomitant]

REACTIONS (3)
  - GLOMERULONEPHRITIS [None]
  - HYPERSENSITIVITY [None]
  - OEDEMA PERIPHERAL [None]
